FAERS Safety Report 16122366 (Version 1)
Quarter: 2019Q1

REPORT INFORMATION
  Report Type: Spontaneous
  Country: US (occurrence: US)
  Receive Date: 20190327
  Receipt Date: 20190327
  Transmission Date: 20190418
  Serious: Yes (Hospitalization)
  Sender: FDA-Public Use
  Company Number: PHEH2019US013126

PATIENT

DRUGS (2)
  1. CEFTRIAXONE. [Suspect]
     Active Substance: CEFTRIAXONE
     Indication: PRODUCTIVE COUGH
     Dosage: 1 G, UNK
     Route: 042
     Dates: start: 20181128
  2. CEFTRIAXONE. [Suspect]
     Active Substance: CEFTRIAXONE
     Indication: DYSPNOEA
     Dosage: 1 G, UNK
     Route: 042
     Dates: start: 20181225, end: 20181225

REACTIONS (2)
  - Anaphylactic reaction [Unknown]
  - Respiratory arrest [Unknown]

NARRATIVE: CASE EVENT DATE: 20181225
